FAERS Safety Report 5787341-0 (Version None)
Quarter: 2008Q2

REPORT INFORMATION
  Report Type: 
  Country: None (occurrence: None)
  Receive Date: 20080625
  Receipt Date: 20070816
  Transmission Date: 20081010
  Serious: No
  Sender: FDA-Public Use
  Company Number: US-ASTRAZENECA-2007UW19786

PATIENT
  Age: 46 Year
  Sex: Female
  Weight: 54.4 kg

DRUGS (9)
  1. PULMICORT-100 [Suspect]
     Indication: ASTHMA
     Route: 055
  2. PULMICORT-100 [Suspect]
     Indication: CHRONIC OBSTRUCTIVE PULMONARY DISEASE
     Route: 055
  3. IPOTROPIUM [Concomitant]
  4. ALBUTEROL [Concomitant]
  5. GABAPENTIN [Concomitant]
  6. HYDROCODONE [Concomitant]
  7. BACLOFEN [Concomitant]
  8. TRAMADOL HCL [Concomitant]
  9. TIZANIDINE HCL [Concomitant]

REACTIONS (2)
  - MUSCULAR WEAKNESS [None]
  - PAIN IN EXTREMITY [None]
